FAERS Safety Report 14606645 (Version 1)
Quarter: 2018Q1

REPORT INFORMATION
  Report Type: Spontaneous
  Country: US (occurrence: US)
  Receive Date: 20180307
  Receipt Date: 20180307
  Transmission Date: 20180509
  Serious: No
  Sender: FDA-Public Use
  Company Number: US-TEVA-820376ACC

PATIENT
  Age: 67 Year
  Sex: Female

DRUGS (10)
  1. BUPROPION HCI ER XL [Concomitant]
     Indication: DEPRESSION
     Dosage: 300 MILLIGRAM DAILY; STARTED TAKING PROBABLY 5 YEARS AGO, ONGOING
     Route: 048
  2. TRIAMTERENE-HCTZ [Concomitant]
     Active Substance: HYDROCHLOROTHIAZIDE\TRIAMTERENE
     Indication: HYPERTENSION
     Dosage: 75/50MG, STARTED TAKING MAY BE 10 YEARS AGO, ONGOING
     Route: 048
  3. FASLODEX [Concomitant]
     Active Substance: FULVESTRANT
     Indication: BREAST CANCER
     Dosage: 250MG/5ML
     Route: 030
     Dates: start: 201601
  4. MELOXICAM. [Concomitant]
     Active Substance: MELOXICAM
     Indication: ARTHRITIS
     Dosage: 7.5 MILLIGRAM DAILY; STARTED TAKING 6 MONTHS AGO, ONGOING
     Route: 048
  5. GABAPENTIN. [Suspect]
     Active Substance: GABAPENTIN
     Indication: NEUROPATHY PERIPHERAL
     Dosage: 300 MILLIGRAM DAILY;
     Route: 048
     Dates: start: 2016
  6. LEVOTHYROXINE SODIUM. [Concomitant]
     Active Substance: LEVOTHYROXINE SODIUM
     Indication: THYROID DISORDER
     Dosage: 50 MICROGRAM DAILY; STARTED TAKING ABOUT A YEAR AND HALF AGO, ONGOING
     Route: 048
  7. GABAPENTIN. [Suspect]
     Active Substance: GABAPENTIN
     Dosage: 900 MILLIGRAM DAILY;
     Route: 048
  8. ESCITALOPRAM OXALATE. [Concomitant]
     Active Substance: ESCITALOPRAM OXALATE
     Indication: DEPRESSION
     Dosage: 30 MILLIGRAM DAILY; STARTED TAKING ABOUT 5 YEARS AGO OR SO, ONGOING
     Route: 048
  9. IBRANCE [Suspect]
     Active Substance: PALBOCICLIB
     Indication: BREAST CANCER METASTATIC
     Dosage: 100 MILLIGRAM DAILY;
     Dates: start: 20170531
  10. FLUTICASONE PROPIONATE. [Concomitant]
     Active Substance: FLUTICASONE PROPIONATE
     Indication: HYPERSENSITIVITY
     Dosage: 50MCG/ACT NASAL SPRAY, STARTED TAKING 6 YEARS AGO, ONGOING
     Route: 045

REACTIONS (6)
  - Crying [Unknown]
  - Feeling abnormal [Unknown]
  - Judgement impaired [Unknown]
  - Mania [Unknown]
  - Energy increased [Unknown]
  - Conversion disorder [Unknown]

NARRATIVE: CASE EVENT DATE: 201706
